FAERS Safety Report 10208510 (Version 2)
Quarter: 2014Q2

REPORT INFORMATION
  Report Type: Spontaneous
  Country: JP (occurrence: JP)
  Receive Date: 20140530
  Receipt Date: 20140617
  Transmission Date: 20141212
  Serious: Yes (Other)
  Sender: FDA-Public Use
  Company Number: JP-GLAXOSMITHKLINE-B0996830A

PATIENT
  Age: 25 Year
  Sex: Male

DRUGS (2)
  1. IMIGRAN STATDOSE [Suspect]
     Indication: CLUSTER HEADACHE
     Dosage: 3MG TWICE PER DAY
     Route: 058
     Dates: start: 20140513, end: 20140521
  2. VASOLAN [Concomitant]
     Route: 065

REACTIONS (2)
  - Shock [Recovered/Resolved]
  - Musculoskeletal stiffness [Recovered/Resolved]
